FAERS Safety Report 15491518 (Version 1)
Quarter: 2018Q4

REPORT INFORMATION
  Report Type: Spontaneous
  Country: FR (occurrence: FR)
  Receive Date: 20181012
  Receipt Date: 20181012
  Transmission Date: 20190205
  Serious: Yes (Other)
  Sender: FDA-Public Use
  Company Number: FR-AUROBINDO-AUR-APL-2018-049673

PATIENT
  Sex: Female

DRUGS (7)
  1. LUCENTIS [Suspect]
     Active Substance: RANIBIZUMAB
     Indication: DIABETIC RETINAL OEDEMA
     Dosage: 0.5 MG,  (RIGHT EYE)
     Route: 031
     Dates: start: 20140312
  2. LUCENTIS [Suspect]
     Active Substance: RANIBIZUMAB
     Indication: VISUAL IMPAIRMENT
     Dosage: 0.5 MG, (RIGHT EYE)
     Route: 031
     Dates: start: 20140212
  3. RAMIPRIL. [Suspect]
     Active Substance: RAMIPRIL
     Indication: HYPERTENSION
     Dosage: UNK
     Route: 065
     Dates: start: 20140201
  4. LUCENTIS [Suspect]
     Active Substance: RANIBIZUMAB
     Dosage: 0.5 MG,  (RIGHT EYE)
     Route: 031
     Dates: start: 20140924
  5. LUCENTIS [Suspect]
     Active Substance: RANIBIZUMAB
     Indication: RETINAL VEIN OCCLUSION
     Dosage: 0.5 MG, (RIGHT EYE)
     Route: 031
     Dates: start: 20140409
  6. LUCENTIS [Suspect]
     Active Substance: RANIBIZUMAB
     Dosage: 0.5 MG,  (RIGHT EYE)
     Route: 031
     Dates: start: 20140827
  7. LUCENTIS [Suspect]
     Active Substance: RANIBIZUMAB
     Dosage: 0.5 MG,  (RIGHT EYE)
     Route: 031
     Dates: start: 20140618

REACTIONS (15)
  - Urinary tract infection [Recovered/Resolved]
  - Eye irritation [Unknown]
  - Cough [Recovered/Resolved]
  - Dry eye [Unknown]
  - Hyperlipidaemia [Unknown]
  - Eye pain [Not Recovered/Not Resolved]
  - Red blood cell count decreased [Recovered/Resolved]
  - Fatigue [Recovered/Resolved]
  - Eye haemorrhage [Not Recovered/Not Resolved]
  - Macular oedema [Unknown]
  - Disease recurrence [Unknown]
  - Hypertension [Recovered/Resolved]
  - Ocular discomfort [Recovered/Resolved]
  - Eye pruritus [Unknown]
  - Vertigo [Unknown]

NARRATIVE: CASE EVENT DATE: 2014
